FAERS Safety Report 6016958-3 (Version None)
Quarter: 2008Q4

REPORT INFORMATION
  Report Type: 
  Country: None (occurrence: None)
  Receive Date: 20081219
  Receipt Date: 20081211
  Transmission Date: 20090506
  Serious: Yes (Other)
  Sender: FDA-Public Use
  Company Number: 2008SP025527

PATIENT
  Age: 80 Year
  Sex: Female

DRUGS (6)
  1. CLARITIN-D 24 HOUR [Suspect]
     Indication: COUGH
     Dosage: 10 MG; PO
     Route: 048
  2. CLARITIN-D 24 HOUR [Suspect]
     Indication: OFF LABEL USE
     Dosage: 10 MG; PO
     Route: 048
  3. CLARITIN-D 24 HOUR [Suspect]
     Indication: POSTNASAL DRIP
     Dosage: 10 MG; PO
     Route: 048
  4. CILOSTAZOL (CON.) [Concomitant]
  5. ATENOLOL (CON.) [Concomitant]
  6. THYROXINAL (CON.) [Concomitant]

REACTIONS (2)
  - INSOMNIA [None]
  - INTRAOCULAR PRESSURE INCREASED [None]
